FAERS Safety Report 20741587 (Version 1)
Quarter: 2022Q2

REPORT INFORMATION
  Report Type: Spontaneous
  Country: US (occurrence: US)
  Receive Date: 20220422
  Receipt Date: 20220422
  Transmission Date: 20220721
  Serious: No
  Sender: FDA-Public Use
  Company Number: US-009507513-2204USA004934

PATIENT
  Sex: Female

DRUGS (23)
  1. JANUVIA [Suspect]
     Active Substance: SITAGLIPTIN PHOSPHATE
     Dosage: UNK
  2. SINGULAIR [Concomitant]
     Active Substance: MONTELUKAST SODIUM
     Dosage: 1 PILL ONCE A DAY AS NEEDED
  3. PROVENTIL [Concomitant]
     Active Substance: ALBUTEROL
     Dosage: 2 PUFFS EVERY 4 HOURS AS NEEDED
  4. LYRICA [Concomitant]
     Active Substance: PREGABALIN
     Dosage: TAKE 1 CAPSULE TWICE A DAY
  5. NOVOLOG [Concomitant]
     Active Substance: INSULIN ASPART
     Dosage: 31 UNITS 3-4 TIMES PER DAY
  6. LEVEMIR [Concomitant]
     Active Substance: INSULIN DETEMIR
     Dosage: 31 UNITS IN THE EVENING
  7. NASACORT [Concomitant]
     Active Substance: TRIAMCINOLONE ACETONIDE
     Dosage: 2 SPRAYS ONCE A DAY AS NEEDED
  8. TRELEGY ELLIPTA [Concomitant]
     Active Substance: FLUTICASONE FUROATE\UMECLIDINIUM BROMIDE\VILANTEROL TRIFENATATE
     Dosage: 1 PUFF ONCE A DAY
  9. IBUPROFEN [Concomitant]
     Active Substance: IBUPROFEN
     Dosage: 800MG, EVERY 8 HOURS AS NEEDED
  10. PEPCID [Concomitant]
     Active Substance: FAMOTIDINE
     Dosage: 1 PILL TWICE A DAY
  11. XYZAL [Concomitant]
     Active Substance: LEVOCETIRIZINE DIHYDROCHLORIDE
     Dosage: 1 DAILY AS NEEDED
  12. ZOLOFT [Concomitant]
     Active Substance: SERTRALINE HYDROCHLORIDE
     Dosage: 25 MG ONCE A DAY
  13. ZOFRAN [Concomitant]
     Active Substance: ONDANSETRON HYDROCHLORIDE
     Dosage: TAKE 1 TABLET EVERY 8 HOURS AS NEEDED
  14. EPIPEN [Concomitant]
     Active Substance: EPINEPHRINE
     Dosage: 0.3MG AUTO INJECT - AS NEEDED
  15. VERAPAMIL [Concomitant]
     Active Substance: VERAPAMIL HYDROCHLORIDE
     Dosage: 1 PILL TWICE A DAY
  16. ATIVAN [Concomitant]
     Active Substance: LORAZEPAM
     Dosage: 0.5MG AS NEEDED
  17. NORFLEX [Concomitant]
     Active Substance: ORPHENADRINE CITRATE
     Dosage: TAKE ONE EVERY 8 HOURS AS NEEDED
  18. BOTOX [Concomitant]
     Active Substance: ONABOTULINUMTOXINA
     Indication: Migraine
  19. VITAMINS [Concomitant]
     Active Substance: VITAMINS
  20. VITAMIN D3 [Concomitant]
     Active Substance: CHOLECALCIFEROL
     Dosage: 2,000 UNITS DAILY
  21. VITAMIN B12 [Concomitant]
     Active Substance: CYANOCOBALAMIN
  22. MAGNESIUM [Concomitant]
     Active Substance: MAGNESIUM
     Dosage: 400MG DAILY
  23. MECLIZINE HYDROCHLORIDE [Concomitant]
     Active Substance: MECLIZINE HYDROCHLORIDE
     Indication: Dizziness

REACTIONS (1)
  - Dizziness [Unknown]
